FAERS Safety Report 17050551 (Version 1)
Quarter: 2019Q4

REPORT INFORMATION
  Report Type: Spontaneous
  Country: CH (occurrence: CH)
  Receive Date: 20191119
  Receipt Date: 20191119
  Transmission Date: 20200122
  Serious: Yes (Other)
  Sender: FDA-Public Use
  Company Number: CH-ASTRAZENECA-2019SF62917

PATIENT
  Sex: Female

DRUGS (3)
  1. FASLODEX [Suspect]
     Active Substance: FULVESTRANT
     Indication: BREAST CANCER METASTATIC
     Route: 030
     Dates: start: 201809, end: 201906
  2. CARBOPLATIN/TAXOL CHEMO [Suspect]
     Active Substance: CARBOPLATIN\PACLITAXEL
     Route: 065
  3. PALBOCICLIB [Suspect]
     Active Substance: PALBOCICLIB
     Indication: BREAST CANCER METASTATIC
     Route: 048
     Dates: start: 201809, end: 201906

REACTIONS (3)
  - Metastases to breast [Unknown]
  - Malignant neoplasm progression [Unknown]
  - Polyneuropathy [Unknown]
